FAERS Safety Report 21537826 (Version 1)
Quarter: 2022Q4

REPORT INFORMATION
  Report Type: Spontaneous
  Country: US (occurrence: US)
  Receive Date: 20221101
  Receipt Date: 20221101
  Transmission Date: 20230113
  Serious: No
  Sender: FDA-Public Use
  Company Number: US-SA-SAC20221029000311

PATIENT
  Sex: Female

DRUGS (5)
  1. DUPIXENT [Suspect]
     Active Substance: DUPILUMAB
     Indication: Dermatitis atopic
     Dosage: 300 MG, QW
     Route: 058
     Dates: start: 20220902
  2. CLOBETASOL [Concomitant]
     Active Substance: CLOBETASOL
  3. MELOXICAM [Concomitant]
     Active Substance: MELOXICAM
  4. TIZANIDINE [Concomitant]
     Active Substance: TIZANIDINE
  5. HYDROXIZINE HCL [Concomitant]

REACTIONS (2)
  - Infection [Not Recovered/Not Resolved]
  - Product use issue [Unknown]

NARRATIVE: CASE EVENT DATE: 20220101
